FAERS Safety Report 9676232 (Version 1)
Quarter: 2013Q4

REPORT INFORMATION
  Report Type: Spontaneous
  Country: US (occurrence: US)
  Receive Date: 20131107
  Receipt Date: 20131107
  Transmission Date: 20140711
  Serious: No
  Sender: FDA-Public Use
  Company Number: US-ENDO PHARMACEUTICALS INC.-METC20120008

PATIENT
  Sex: Female
  Weight: 54.48 kg

DRUGS (3)
  1. METHOCARBAMOL TABLETS 750MG [Suspect]
     Indication: MIGRAINE
     Route: 048
     Dates: start: 2012, end: 2012
  2. SYNTHROID [Concomitant]
     Indication: PRODUCT USED FOR UNKNOWN INDICATION
     Dosage: UNKNOWN
     Route: 065
  3. CITALOPRAM [Concomitant]
     Indication: PRODUCT USED FOR UNKNOWN INDICATION
     Dosage: UNKNOWN
     Route: 065

REACTIONS (3)
  - Rectal haemorrhage [Unknown]
  - Abdominal pain upper [Unknown]
  - Nausea [Unknown]
